FAERS Safety Report 7417498-7 (Version None)
Quarter: 2011Q2

REPORT INFORMATION
  Report Type: 
  Country: None (occurrence: None)
  Receive Date: 20110408
  Receipt Date: 20110325
  Transmission Date: 20111010
  Serious: Yes (Hospitalization)
  Sender: FDA-Public Use
  Company Number: TPA2011A00882

PATIENT
  Age: 66 Year
  Sex: Female
  Weight: 79.8 kg

DRUGS (6)
  1. ZOLOFT [Concomitant]
  2. TOPROL-XL [Concomitant]
  3. DEXILANT [Suspect]
     Indication: COUGH
     Dosage: 60 MG, EVERY AM, PER ORAL
     Route: 048
     Dates: start: 20110218, end: 20110222
  4. AMBIEN [Suspect]
     Indication: INSOMNIA
     Dosage: 10 MG, 1 IN 1 D, PER ORAL
     Route: 048
  5. LIPITOE (ATORVASTATIN CALCIUM) [Concomitant]
  6. TRAMADOL HCL [Suspect]
     Indication: PAIN
     Dosage: 50 MG, 1 IN 1 D), PER ORAL
     Route: 048

REACTIONS (7)
  - IMPAIRED WORK ABILITY [None]
  - BLOOD GLUCOSE INCREASED [None]
  - BLOOD PHOSPHORUS DECREASED [None]
  - TRANSIENT GLOBAL AMNESIA [None]
  - SPEECH DISORDER [None]
  - BLOOD CREATINE PHOSPHOKINASE INCREASED [None]
  - BLOOD CREATINE PHOSPHOKINASE MB INCREASED [None]
